FAERS Safety Report 9275762 (Version 2)
Quarter: 2013Q2

REPORT INFORMATION
  Report Type: Spontaneous
  Country: FR (occurrence: None)
  Receive Date: 20130430
  Receipt Date: 20130430
  Transmission Date: 20140414
  Serious: Yes (Disabling, Other)
  Sender: FDA-Public Use
  Company Number: AUR-APL-2013-03341

PATIENT
  Age: 65 Year
  Sex: Female

DRUGS (4)
  1. METFORMIN (METFORMIN) [Suspect]
     Indication: PRODUCT USED FOR UNKNOWN INDICATION
     Dosage: 1700 MG (850 MG, 2 IN 1 D), ORAL
     Route: 048
     Dates: start: 20121107, end: 20130124
  2. LYRICA (PREGABALIN) [Suspect]
     Indication: PRODUCT USED FOR UNKNOWN INDICATION
     Route: 048
     Dates: start: 20121108, end: 20121220
  3. STAGID (METFORMIN EMBONATE) [Suspect]
     Indication: TYPE 2 DIABETES MELLITUS
     Dosage: 2100 MG (700 MG, 3 IN 1 D), ORAL
     Route: 048
     Dates: start: 20130121
  4. PREGABALIN (PREGABALIN) [Concomitant]

REACTIONS (5)
  - Head injury [None]
  - Anosmia [None]
  - Nausea [None]
  - Deafness unilateral [None]
  - Deafness neurosensory [None]
